FAERS Safety Report 23909906 (Version 1)
Quarter: 2024Q2

REPORT INFORMATION
  Report Type: Spontaneous
  Country: GR (occurrence: GR)
  Receive Date: 20240528
  Receipt Date: 20240528
  Transmission Date: 20240715
  Serious: Yes (Death)
  Sender: FDA-Public Use
  Company Number: GR-INCYTE CORPORATION-2024IN005520

PATIENT

DRUGS (1)
  1. TAFASITAMAB [Suspect]
     Active Substance: TAFASITAMAB
     Route: 042

REACTIONS (1)
  - Disease progression [Fatal]
